FAERS Safety Report 25150065 (Version 1)
Quarter: 2025Q2

REPORT INFORMATION
  Report Type: Spontaneous
  Country: AU (occurrence: AU)
  Receive Date: 20250402
  Receipt Date: 20250402
  Transmission Date: 20250716
  Serious: Yes (Other)
  Sender: GALPHARM INTERNATIONAL
  Company Number: AU-MYLANLABS-2025M1012033

PATIENT

DRUGS (2)
  1. ACETAMINOPHEN [Suspect]
     Active Substance: ACETAMINOPHEN
     Indication: Product used for unknown indication
     Route: 048
  2. ACETYLCYSTEINE [Suspect]
     Active Substance: ACETYLCYSTEINE
     Indication: Toxicity to various agents
     Route: 065
     Dates: start: 2022

REACTIONS (2)
  - Toxicity to various agents [Unknown]
  - Accidental underdose [Unknown]

NARRATIVE: CASE EVENT DATE: 20220101
